FAERS Safety Report 8726729 (Version 2)
Quarter: 2012Q4

REPORT INFORMATION
  Report Type: 
  Country: US (occurrence: US)
  Receive Date: 20120816
  Receipt Date: 20120905
  Transmission Date: 20130627
  Serious: Yes (Hospitalization)
  Sender: FDA-Public Use
  Company Number: US-CELGENEUS-163-21880-12081161

PATIENT
  Age: 69 Year
  Sex: Male

DRUGS (4)
  1. REVLIMID [Suspect]
     Indication: MULTIPLE MYELOMA WITHOUT MENTION OF REMISSION
     Dosage: 25 Milligram
     Route: 048
     Dates: start: 20101209, end: 2011
  2. REVLIMID [Suspect]
     Dosage: 15 Milligram
     Route: 048
     Dates: start: 201104, end: 2012
  3. REVLIMID [Suspect]
     Dosage: 10 Milligram
     Route: 048
     Dates: start: 201203
  4. AREDIA [Concomitant]
     Indication: DRUG USE FOR UNKNOWN INDICATION
     Route: 065

REACTIONS (3)
  - Laboratory test abnormal [Unknown]
  - Electrocardiogram abnormal [Unknown]
  - Cardiac disorder [Unknown]
